FAERS Safety Report 9348778 (Version 1)
Quarter: 2013Q2

REPORT INFORMATION
  Report Type: Spontaneous
  Country: US (occurrence: US)
  Receive Date: 20130614
  Receipt Date: 20130614
  Transmission Date: 20140414
  Serious: Yes (Hospitalization)
  Sender: FDA-Public Use
  Company Number: US-SANOFI-AVENTIS-2013SA023683

PATIENT
  Age: 39 Year
  Sex: Female

DRUGS (1)
  1. AUBAGIO [Suspect]
     Indication: MULTIPLE SCLEROSIS
     Route: 048
     Dates: start: 20130110

REACTIONS (8)
  - Dehydration [Unknown]
  - Asthenia [Unknown]
  - Bacterial infection [Unknown]
  - Dysuria [Not Recovered/Not Resolved]
  - Colitis [Unknown]
  - Viral infection [Unknown]
  - Headache [Not Recovered/Not Resolved]
  - Nausea [Unknown]
